FAERS Safety Report 4804532-3 (Version None)
Quarter: 2005Q4

REPORT INFORMATION
  Report Type: 
  Country: None (occurrence: None)
  Receive Date: 20051017
  Receipt Date: 20051010
  Transmission Date: 20060501
  Serious: Yes (Other)
  Sender: FDA-Public Use
  Company Number: HQWYE947910OCT05

PATIENT
  Sex: Male

DRUGS (2)
  1. EFFEXOR [Suspect]
     Dosage: ^37 MG^ DAILY, ORAL
     Route: 048
  2. CARVEDILOL [Suspect]
     Dosage: 3.3 MG 1X PER 1 DAY, ORAL
     Route: 048

REACTIONS (5)
  - FEELING COLD [None]
  - FEELING HOT [None]
  - PULMONARY OEDEMA [None]
  - TACHYCARDIA [None]
  - THROAT TIGHTNESS [None]
